APPROVED DRUG PRODUCT: DONEPEZIL HYDROCHLORIDE
Active Ingredient: DONEPEZIL HYDROCHLORIDE
Strength: 5MG
Dosage Form/Route: TABLET;ORAL
Application: A201335 | Product #001
Applicant: ACCORD HEALTHCARE INC
Approved: Aug 29, 2011 | RLD: No | RS: No | Type: DISCN